FAERS Safety Report 24942947 (Version 1)
Quarter: 2025Q1

REPORT INFORMATION
  Report Type: Spontaneous
  Country: DE (occurrence: DE)
  Receive Date: 20250207
  Receipt Date: 20250207
  Transmission Date: 20250408
  Serious: Yes (Hospitalization)
  Sender: BAYER HEALTHCARE PHARMACEUTICALS INC.
  Company Number: DE-BAYER-2024A107132

PATIENT
  Age: 70 Year
  Sex: Male
  Weight: 106 kg

DRUGS (6)
  1. NUBEQA [Suspect]
     Active Substance: DAROLUTAMIDE
     Indication: Hormone-dependent prostate cancer
     Dosage: 1200 MG, QD
     Route: 048
     Dates: start: 20240624, end: 20240703
  2. BICALUTAMIDE [Suspect]
     Active Substance: BICALUTAMIDE
     Indication: Hormone-dependent prostate cancer
     Dosage: 50 MG, QD
     Route: 048
     Dates: start: 20240530, end: 20240703
  3. DOCETAXEL [Suspect]
     Active Substance: DOCETAXEL
     Indication: Hormone-dependent prostate cancer
  4. ALFUZOSIN [Concomitant]
     Active Substance: ALFUZOSIN
     Indication: Urinary tract obstruction
     Dosage: 5 MG, QD
     Route: 048
     Dates: start: 20240104
  5. APIXABAN [Concomitant]
     Active Substance: APIXABAN
     Indication: Atrial fibrillation
     Dosage: 5 MG, QD
     Route: 048
     Dates: start: 20240407
  6. PROPOFOL [Concomitant]
     Active Substance: PROPOFOL
     Indication: Sedation
     Dates: start: 20240704

REACTIONS (1)
  - Atrial fibrillation [Recovered/Resolved]

NARRATIVE: CASE EVENT DATE: 20240703
